FAERS Safety Report 19722503 (Version 1)
Quarter: 2021Q3

REPORT INFORMATION
  Report Type: Spontaneous
  Country: FR (occurrence: FR)
  Receive Date: 20210819
  Receipt Date: 20210819
  Transmission Date: 20211014
  Serious: Yes (Death)
  Sender: FDA-Public Use
  Company Number: FR-MYLANLABS-2021M1053005

PATIENT
  Age: 72 Year
  Sex: Male

DRUGS (11)
  1. FLUCONAZOLE MYLAN [Suspect]
     Active Substance: FLUCONAZOLE
     Indication: PSEUDOMONAS INFECTION
  2. IMIPENEM [Suspect]
     Active Substance: IMIPENEM
     Indication: OTITIS EXTERNA
     Dosage: UNK
  3. FOSFOMYCIN MYLAN [Suspect]
     Active Substance: FOSFOMYCIN
     Indication: PSEUDOMONAS INFECTION
     Dosage: UNK
  4. CIFLOX                             /00697201/ [Suspect]
     Active Substance: CIPROFLOXACIN
     Indication: OTITIS EXTERNA
     Dosage: UNK
     Route: 042
  5. CIFLOX                             /00697201/ [Suspect]
     Active Substance: CIPROFLOXACIN
     Indication: PSEUDOMONAS INFECTION
  6. CEFTAZIDIME MYLAN [Suspect]
     Active Substance: CEFTAZIDIME
     Indication: OTITIS EXTERNA
     Dosage: UNK
  7. IMIPENEM [Suspect]
     Active Substance: IMIPENEM
     Indication: PSEUDOMONAS INFECTION
  8. FLUCONAZOLE MYLAN [Suspect]
     Active Substance: FLUCONAZOLE
     Indication: CANDIDA INFECTION
     Dosage: UNK
  9. FOSFOMYCIN MYLAN [Suspect]
     Active Substance: FOSFOMYCIN
     Indication: OTITIS EXTERNA
  10. CEFTAZIDIME MYLAN [Suspect]
     Active Substance: CEFTAZIDIME
     Indication: PSEUDOMONAS INFECTION
  11. VORICONAZOLE MYLAN [Suspect]
     Active Substance: VORICONAZOLE
     Indication: ASPERGILLUS INFECTION
     Dosage: UNK
     Route: 042

REACTIONS (1)
  - Drug ineffective [Fatal]
